FAERS Safety Report 16149900 (Version 1)
Quarter: 2019Q2

REPORT INFORMATION
  Report Type: Spontaneous
  Country: US (occurrence: US)
  Receive Date: 20190403
  Receipt Date: 20190403
  Transmission Date: 20190711
  Serious: No
  Sender: FDA-Public Use
  Company Number: US-MYLANLABS-2019M1024022

PATIENT

DRUGS (2)
  1. AMFETAMINE/DEXAMFETAMINE [Suspect]
     Active Substance: AMPHETAMINE SULFATE\DEXTROAMPHETAMINE
     Indication: PRODUCT USED FOR UNKNOWN INDICATION
     Dosage: UNK
     Route: 065
  2. AMFETAMINE/DEXAMFETAMINE [Suspect]
     Active Substance: AMPHETAMINE SULFATE\DEXTROAMPHETAMINE
     Dosage: 5 MILLIGRAM
     Route: 065

REACTIONS (3)
  - Insomnia [Unknown]
  - Blood pressure increased [Unknown]
  - Heart rate increased [Unknown]
